FAERS Safety Report 7910687-4 (Version None)
Quarter: 2011Q4

REPORT INFORMATION
  Report Type: 
  Country: None (occurrence: None)
  Receive Date: 20111111
  Receipt Date: 20111104
  Transmission Date: 20120403
  Serious: Yes (Other)
  Sender: FDA-Public Use
  Company Number: GB-ASTRAZENECA-2011SE66674

PATIENT
  Sex: Female

DRUGS (3)
  1. OMEPRAZOLE [Suspect]
     Route: 048
  2. PHENYTOIN [Concomitant]
  3. CHLOPHAZAN [Concomitant]

REACTIONS (3)
  - INJURY [None]
  - FALL [None]
  - CONVULSION [None]
